FAERS Safety Report 21493510 (Version 2)
Quarter: 2022Q4

REPORT INFORMATION
  Report Type: Report from Study
  Country: DE (occurrence: DE)
  Receive Date: 20221021
  Receipt Date: 20221222
  Transmission Date: 20230113
  Serious: Yes (Hospitalization)
  Sender: FDA-Public Use
  Company Number: DE-TEVA-2022-DE-2061219

PATIENT
  Age: 52 Year
  Sex: Female

DRUGS (4)
  1. COPAXONE [Suspect]
     Active Substance: GLATIRAMER ACETATE
     Indication: Multiple sclerosis
     Dosage: FORM STRENGTH: 40MG, THREE TIMES IN 1 WEEK
     Dates: start: 20180110
  2. LEVOTHYROXINE SODIUM\POTASSIUM IODIDE [Concomitant]
     Active Substance: LEVOTHYROXINE SODIUM\POTASSIUM IODIDE
     Indication: Product used for unknown indication
     Dosage: 50 1X IN THE MORNING
  3. DULOXETINE [Concomitant]
     Active Substance: DULOXETINE
     Indication: Product used for unknown indication
     Dosage: 60 1X IN THE MORNING
  4. CHOLECALCIFEROL [Concomitant]
     Active Substance: CHOLECALCIFEROL
     Indication: Product used for unknown indication
     Dosage: 20000 1X EVERY MONDAY

REACTIONS (8)
  - Injection site cellulitis [Unknown]
  - Injection site erythema [Recovering/Resolving]
  - Injection site swelling [Recovering/Resolving]
  - Inflammatory marker increased [Recovering/Resolving]
  - Injection site erythema [Recovering/Resolving]
  - Immediate post-injection reaction [Unknown]
  - Feeling cold [Recovered/Resolved]
  - Piloerection [Recovered/Resolved]

NARRATIVE: CASE EVENT DATE: 20220101
